FAERS Safety Report 7936501-9 (Version None)
Quarter: 2011Q4

REPORT INFORMATION
  Report Type: 
  Country: None (occurrence: None)
  Receive Date: 20111123
  Receipt Date: 20110823
  Transmission Date: 20120403
  Serious: No
  Sender: FDA-Public Use
  Company Number: US-BAYER-2011-080588

PATIENT
  Age: 43 Year
  Sex: Male
  Weight: 73 kg

DRUGS (6)
  1. ALEVE (CAPLET) [Suspect]
     Indication: PAIN
  2. BENZTROPINE MESYLATE [Concomitant]
  3. TYLENOL-500 [Suspect]
  4. TYLENOL PM [Suspect]
  5. PIOPHEN [Concomitant]
  6. LORAZEPAM [Concomitant]

REACTIONS (3)
  - HYPOAESTHESIA ORAL [None]
  - THROAT IRRITATION [None]
  - PAIN [None]
